FAERS Safety Report 5297274-4 (Version None)
Quarter: 2007Q2

REPORT INFORMATION
  Report Type: 
  Country: None (occurrence: None)
  Receive Date: 20070416
  Receipt Date: 20070410
  Transmission Date: 20071010
  Serious: Yes (Other)
  Sender: FDA-Public Use
  Company Number: GB-ELI_LILLY_AND_COMPANY-GB200703001135

PATIENT
  Age: 63 Year
  Sex: Female
  Weight: 76 kg

DRUGS (12)
  1. GEMCITABINE HCL [Suspect]
     Indication: BLADDER TRANSITIONAL CELL CARCINOMA
     Dosage: 1800 MG, UNK
     Route: 042
     Dates: start: 20070219
  2. CARBOPLATIN [Concomitant]
     Indication: BLADDER CANCER
     Dosage: 5 UNK, UNK
     Dates: start: 20070201
  3. BENDROFLUAZIDE [Concomitant]
     Dates: end: 20070201
  4. SULFASALAZINE [Concomitant]
  5. RABEPRAZOLE SODIUM [Concomitant]
  6. ATENOLOL [Concomitant]
  7. AMLODIPINE [Concomitant]
  8. ASPIRIN [Concomitant]
  9. RAMIPRIL [Concomitant]
  10. GTN-S [Concomitant]
  11. STATIN /00084401/ [Concomitant]
  12. CIPROFLOXACIN [Concomitant]
     Dosage: 250 MG, 2/D
     Dates: start: 20070223, end: 20070305

REACTIONS (1)
  - HYPONATRAEMIA [None]
